FAERS Safety Report 4991691-5 (Version None)
Quarter: 2006Q2

REPORT INFORMATION
  Report Type: 
  Country: None (occurrence: None)
  Receive Date: 20060504
  Receipt Date: 20050822
  Transmission Date: 20061013
  Serious: Yes (Hospitalization)
  Sender: FDA-Public Use
  Company Number: HQWYE062123AUG05

PATIENT
  Sex: Female

DRUGS (5)
  1. ENBREL [Suspect]
     Indication: RHEUMATOID ARTHRITIS
     Route: 058
     Dates: start: 20050805
  2. VOLTAREN [Concomitant]
     Route: 065
  3. PREDNISOLONE [Concomitant]
  4. RISEDRONIC ACID [Concomitant]
  5. AMLODIPINE BESYLATE [Concomitant]

REACTIONS (3)
  - BLOOD ALKALINE PHOSPHATASE INCREASED [None]
  - FALL [None]
  - FRACTURE [None]
